FAERS Safety Report 22516453 (Version 1)
Quarter: 2023Q2

REPORT INFORMATION
  Report Type: Spontaneous
  Country: US (occurrence: US)
  Receive Date: 20230603
  Receipt Date: 20230603
  Transmission Date: 20230721
  Serious: Yes (Death, Life-Threatening, Hospitalization, Other)
  Sender: FDA-Public Use
  Company Number: US-AMGEN-USASP2023092731

PATIENT

DRUGS (3)
  1. BLINATUMOMAB [Suspect]
     Active Substance: BLINATUMOMAB
     Indication: Acute leukaemia
     Dosage: UNK
     Route: 065
  2. CYTARABINE [Concomitant]
     Active Substance: CYTARABINE
     Indication: Acute leukaemia
     Dosage: HIGH DOSE INFUSED OVER 3 H ONCE DAILY FOR FIVE DAYS
     Route: 042
  3. MITOXANTRONE [Concomitant]
     Active Substance: MITOXANTRONE HYDROCHLORIDE
     Indication: Acute leukaemia
     Dosage: 40 OR 80 MILLIGRAM PER SQUARE METRE, OVER 1 H ON DAY 3
     Route: 042

REACTIONS (11)
  - Acute leukaemia [Fatal]
  - Death [Fatal]
  - Respiratory failure [Unknown]
  - Hepatotoxicity [Unknown]
  - Lineage switch leukaemia [Unknown]
  - Acute kidney injury [Unknown]
  - Febrile neutropenia [Unknown]
  - Bacteraemia [Unknown]
  - Nephropathy toxic [Unknown]
  - Off label use [Unknown]
  - Systemic mycosis [Unknown]
